FAERS Safety Report 5732850-3 (Version None)
Quarter: 2008Q2

REPORT INFORMATION
  Report Type: 
  Country: None (occurrence: None)
  Receive Date: 20080507
  Receipt Date: 20080507
  Transmission Date: 20081010
  Serious: Yes (Disabling)
  Sender: FDA-Public Use
  Company Number: None

PATIENT
  Age: 30 Year
  Sex: Female
  Weight: 63.5036 kg

DRUGS (2)
  1. BACTRIM [Suspect]
     Indication: CYSTITIS
     Dosage: 160MG  -1- TABLET TWICE PO
     Route: 048
     Dates: start: 20080502, end: 20080504
  2. BACTRIM [Suspect]
     Indication: URINARY TRACT INFECTION
     Dosage: 160MG  -1- TABLET TWICE PO
     Route: 048
     Dates: start: 20080502, end: 20080504

REACTIONS (1)
  - STEVENS-JOHNSON SYNDROME [None]
